FAERS Safety Report 13737873 (Version 1)
Quarter: 2017Q3

REPORT INFORMATION
  Report Type: Spontaneous
  Country: US (occurrence: US)
  Receive Date: 20170710
  Receipt Date: 20170710
  Transmission Date: 20171127
  Serious: No
  Sender: FDA-Public Use
  Company Number: US-SAOL THERAPEUTICS-2016SAO00705

PATIENT
  Sex: Male

DRUGS (3)
  1. BUPIVACAINE. [Suspect]
     Active Substance: BUPIVACAINE
     Dosage: 1.654 MG, \DAY
     Route: 037
  2. COMPOUNDED BACLOFEN [Suspect]
     Active Substance: BACLOFEN
     Indication: SPINAL PAIN
     Dosage: 11.94 ?G, \DAY
     Route: 037
  3. MORPHINE [Suspect]
     Active Substance: MORPHINE
     Dosage: 5.514 MG, \DAY
     Route: 037

REACTIONS (5)
  - Implant site pain [Unknown]
  - Device occlusion [Unknown]
  - Drug ineffective for unapproved indication [Unknown]
  - Burning sensation [Unknown]
  - Device dislocation [Unknown]

NARRATIVE: CASE EVENT DATE: 20120523
